FAERS Safety Report 4836652-1 (Version None)
Quarter: 2005Q4

REPORT INFORMATION
  Report Type: 
  Country: None (occurrence: None)
  Receive Date: 20051123
  Receipt Date: 20051117
  Transmission Date: 20060501
  Serious: Yes (Other)
  Sender: FDA-Public Use
  Company Number: US-ABBOTT-05P-163-0317814-00

PATIENT
  Age: 36 Year
  Sex: Female

DRUGS (7)
  1. RITONAVIR SOFT GELATIN CAPSULES [Suspect]
     Indication: DRUG USE FOR UNKNOWN INDICATION
  2. EMTRICITABINE/ TENOFOVIR VS PLACEBO [Suspect]
     Indication: DRUG USE FOR UNKNOWN INDICATION
     Dosage: 200 MG/ 300MG
     Dates: start: 20051019
  3. ABACAVIR/ LAMIVUDINE VS PLACEBO [Suspect]
     Indication: DRUG USE FOR UNKNOWN INDICATION
  4. ATAZANOVIR [Suspect]
     Indication: DRUG USE FOR UNKNOWN INDICATION
  5. DAPSON [Concomitant]
     Indication: DRUG USE FOR UNKNOWN INDICATION
  6. FLUCONAZOLE [Concomitant]
     Indication: DRUG USE FOR UNKNOWN INDICATION
  7. AZITHROMYCIN [Concomitant]
     Indication: DRUG USE FOR UNKNOWN INDICATION

REACTIONS (1)
  - HYPERBILIRUBINAEMIA [None]
